FAERS Safety Report 5454712-1 (Version None)
Quarter: 2007Q3

REPORT INFORMATION
  Report Type: 
  Country: None (occurrence: None)
  Receive Date: 20070917
  Receipt Date: 20061009
  Transmission Date: 20080115
  Serious: Yes (Other)
  Sender: FDA-Public Use
  Company Number: US-ASTRAZENECA-2006UW19573

PATIENT
  Age: 35 Year
  Sex: Male
  Weight: 136.1 kg

DRUGS (3)
  1. SEROQUEL [Suspect]
     Indication: SCHIZOPHRENIA
     Route: 048
     Dates: start: 20060601
  2. XANAX [Concomitant]
  3. ATIVAN [Concomitant]

REACTIONS (5)
  - ANGER [None]
  - ANXIETY [None]
  - DYSPNOEA [None]
  - HYPERTENSION [None]
  - WEIGHT INCREASED [None]
